FAERS Safety Report 10038972 (Version 1)
Quarter: 2014Q1

REPORT INFORMATION
  Report Type: Spontaneous
  Country: US (occurrence: None)
  Receive Date: 20140306
  Receipt Date: 20140306
  Transmission Date: 20141002
  Serious: Yes (Hospitalization, Other)
  Sender: FDA-Public Use
  Company Number: 163-21880-13052801

PATIENT
  Age: 70 Year
  Sex: Male

DRUGS (12)
  1. REVLIMID [Suspect]
     Indication: PLASMA CELL MYELOMA
     Dosage: 21 IN 28 D, PO
     Dates: start: 20111120
  2. ASPIRINE (ACETYLSALICYLIC ACID) (UNKNOWN) [Concomitant]
  3. AMOXICILLIN (AMOXICILLIN) (UNKNOWN) [Concomitant]
  4. BACTRIM (BACTRIM) UNKNOWN) [Concomitant]
  5. MAGNESIUM (MAGENESIUM) (UNKNOWN) [Concomitant]
  6. VITAMIN E (TOCOPHEROL) [Concomitant]
  7. VITAMIN B6 (PYRIDOXINE HYDROCHLORIDE) (UNKNOWN) [Concomitant]
  8. ZINC (ZINC) (UNKNOWN) [Concomitant]
  9. VELCADE (BORTEZOMIB) [Concomitant]
  10. WARFARIN (WARFARIN) (UNKOWN) [Concomitant]
  11. TYLENOL (PARACETAMOL) (UNKNOWN) [Concomitant]
  12. METAMUCIL (METAMUCIL ^ PROCTER + GAMBLE ^) (UNKNOWN) [Concomitant]

REACTIONS (2)
  - Joint swelling [None]
  - Cellulitis [None]
